FAERS Safety Report 7273487-7 (Version None)
Quarter: 2011Q1

REPORT INFORMATION
  Report Type: 
  Country: None (occurrence: None)
  Receive Date: 20110203
  Receipt Date: 20110126
  Transmission Date: 20110831
  Serious: Yes (Hospitalization)
  Sender: FDA-Public Use
  Company Number: US-BAXTER-2010BH030372

PATIENT
  Age: 9 Month
  Sex: Male

DRUGS (1)
  1. DIANEAL [Suspect]
     Indication: PERITONEAL DIALYSIS
     Route: 033
     Dates: start: 20101201

REACTIONS (4)
  - PERITONITIS BACTERIAL [None]
  - DISCOMFORT [None]
  - KLEBSIELLA TEST POSITIVE [None]
  - PNEUMOPERITONEUM [None]
